FAERS Safety Report 6500401-1 (Version None)
Quarter: 2009Q4

REPORT INFORMATION
  Report Type: 
  Country: None (occurrence: None)
  Receive Date: 20091216
  Receipt Date: 20091207
  Transmission Date: 20100525
  Serious: Yes (Hospitalization)
  Sender: FDA-Public Use
  Company Number: PHEH2009US14920

PATIENT
  Sex: Female

DRUGS (6)
  1. EXJADE [Suspect]
     Indication: SICKLE CELL ANAEMIA
     Dosage: 1500 MG/DAY
     Route: 048
     Dates: start: 20090902, end: 20090914
  2. EXJADE [Suspect]
     Indication: IRON OVERLOAD
  3. ADVAIR DISKUS 100/50 [Concomitant]
     Dosage: UNK
  4. ALBUTEROL [Concomitant]
     Dosage: UNK
  5. FOLIC ACID [Concomitant]
     Dosage: 1 MG/DAY
  6. HYDROXYUREA [Concomitant]
     Dosage: UNK, DAILY

REACTIONS (6)
  - DIZZINESS [None]
  - MALAISE [None]
  - NAUSEA [None]
  - PAIN [None]
  - RASH [None]
  - SICKLE CELL ANAEMIA WITH CRISIS [None]
